FAERS Safety Report 20671070 (Version 1)
Quarter: 2022Q2

REPORT INFORMATION
  Report Type: Spontaneous
  Country: US (occurrence: US)
  Receive Date: 20220404
  Receipt Date: 20220404
  Transmission Date: 20220720
  Serious: No
  Sender: FDA-Public Use
  Company Number: US-SA-SAC20220404000069

PATIENT
  Sex: Female

DRUGS (2)
  1. AUBAGIO [Suspect]
     Active Substance: TERIFLUNOMIDE
     Indication: Multiple sclerosis
     Route: 048
  2. KESIMPTA [Concomitant]
     Active Substance: OFATUMUMAB

REACTIONS (9)
  - Chills [Unknown]
  - Fatigue [Unknown]
  - Respiratory symptom [Unknown]
  - Blood pressure increased [Unknown]
  - Hypovitaminosis [Unknown]
  - Visual impairment [Unknown]
  - Psychomotor skills impaired [Unknown]
  - Asthenia [Unknown]
  - Impaired quality of life [Unknown]
